FAERS Safety Report 13989608 (Version 2)
Quarter: 2017Q4

REPORT INFORMATION
  Report Type: Spontaneous
  Country: US (occurrence: US)
  Receive Date: 20170920
  Receipt Date: 20171006
  Transmission Date: 20180321
  Serious: Yes (Death, Life-Threatening, Hospitalization)
  Sender: FDA-Public Use
  Company Number: US-LEADIANT BIOSCIENCES INC-2017STPI000676

PATIENT
  Age: 70 Year
  Sex: Male

DRUGS (8)
  1. ETOPOSIDE. [Concomitant]
     Active Substance: ETOPOSIDE
  2. PREDNISONE. [Concomitant]
     Active Substance: PREDNISONE
  3. HALOPERIDOL. [Concomitant]
     Active Substance: HALOPERIDOL
  4. CYCLOPHOSPHAMIDE. [Concomitant]
     Active Substance: CYCLOPHOSPHAMIDE
  5. MATULANE [Suspect]
     Active Substance: PROCARBAZINE HYDROCHLORIDE
     Indication: B-CELL LYMPHOMA
     Dosage: 100 MG, QD
     Route: 048
     Dates: start: 20170809, end: 20170813
  6. NEULASTA [Concomitant]
     Active Substance: PEGFILGRASTIM
  7. ACYCLOVIR                          /00587301/ [Concomitant]
     Active Substance: ACYCLOVIR
  8. SENEXON                            /00571901/ [Concomitant]

REACTIONS (5)
  - Septic shock [Fatal]
  - Pancytopenia [Not Recovered/Not Resolved]
  - Mental status changes [Not Recovered/Not Resolved]
  - Tachyarrhythmia [Fatal]
  - Febrile neutropenia [Not Recovered/Not Resolved]

NARRATIVE: CASE EVENT DATE: 20170903
